FAERS Safety Report 9188598 (Version 1)
Quarter: 2013Q1

REPORT INFORMATION
  Report Type: Spontaneous
  Country: IT (occurrence: IT)
  Receive Date: 20130325
  Receipt Date: 20130325
  Transmission Date: 20140127
  Serious: Yes (Other)
  Sender: FDA-Public Use
  Company Number: IT-MYLANLABS-2013S1005829

PATIENT
  Age: 47 Year
  Sex: Female

DRUGS (2)
  1. PACLITAXEL [Suspect]
     Indication: BREAST CANCER
     Dosage: CYCLIC
     Route: 040
     Dates: start: 20120810, end: 20130104
  2. AVASTIN /01555201/ [Concomitant]
     Indication: PRODUCT USED FOR UNKNOWN INDICATION

REACTIONS (3)
  - Herpes zoster [Not Recovered/Not Resolved]
  - Onychoclasis [Not Recovered/Not Resolved]
  - Erysipelas [Not Recovered/Not Resolved]
